FAERS Safety Report 13526747 (Version 1)
Quarter: 2017Q2

REPORT INFORMATION
  Report Type: Spontaneous
  Country: US (occurrence: US)
  Receive Date: 20170508
  Receipt Date: 20170508
  Transmission Date: 20170830
  Serious: Yes (Hospitalization)
  Sender: FDA-Public Use
  Company Number: None

PATIENT
  Age: 54 Year
  Sex: Female

DRUGS (13)
  1. FASLODEX [Concomitant]
     Active Substance: FULVESTRANT
  2. VALACYCLOVIR [Concomitant]
     Active Substance: VALACYCLOVIR HYDROCHLORIDE
  3. VITAMIN D3 [Concomitant]
     Active Substance: CHOLECALCIFEROL
  4. VENLAFAXINE [Concomitant]
     Active Substance: VENLAFAXINE HYDROCHLORIDE
  5. CEPHALEXIN. [Concomitant]
     Active Substance: CEPHALEXIN
  6. TEMAZEPAM. [Concomitant]
     Active Substance: TEMAZEPAM
  7. PRILOSEC [Concomitant]
     Active Substance: OMEPRAZOLE MAGNESIUM
  8. QVAR AER [Concomitant]
  9. LYRICA [Concomitant]
     Active Substance: PREGABALIN
  10. ATORVASTATIN [Concomitant]
     Active Substance: ATORVASTATIN
  11. IBRANCE [Suspect]
     Active Substance: PALBOCICLIB
     Indication: BREAST CANCER FEMALE
     Route: 048
     Dates: start: 20170118, end: 20170414
  12. HYDROCODONE [Concomitant]
     Active Substance: HYDROCODONE
  13. PROVENTIL HFA [Concomitant]
     Active Substance: ALBUTEROL SULFATE

REACTIONS (1)
  - Drug ineffective [None]

NARRATIVE: CASE EVENT DATE: 20170414
